FAERS Safety Report 4806736-2 (Version None)
Quarter: 2005Q4

REPORT INFORMATION
  Report Type: 
  Country: None (occurrence: None)
  Receive Date: 20051019
  Receipt Date: 20050930
  Transmission Date: 20060501
  Serious: Yes (Hospitalization)
  Sender: FDA-Public Use
  Company Number: 6017614

PATIENT
  Age: 80 Year
  Sex: Female

DRUGS (6)
  1. LEVOTHYROXINE SODIUM [Suspect]
     Dosage: 0,2500 DOSAGE FORMS (0,25 DOSAGE FORMS, 1 IN 1 D), ORAL
     Route: 048
     Dates: start: 20050825
  2. PREVISCAN                           (FLUINDIONE) [Suspect]
     Dosage: 0,2500 DOSAGE FORMS (0,25 DOSAGE FORMS, 1 IN 1 D)
  3. POTASSIUM CHLORIDE [Concomitant]
  4. FLECAINIDE ACETATE [Concomitant]
  5. HYDROCORTISONE [Concomitant]
  6. MODOPAR [Concomitant]

REACTIONS (8)
  - CEREBRAL HAEMATOMA [None]
  - COMA [None]
  - DRUG INTERACTION [None]
  - FACIAL PALSY [None]
  - HEMIPLEGIA [None]
  - INTERNATIONAL NORMALISED RATIO INCREASED [None]
  - LOSS OF CONSCIOUSNESS [None]
  - MALAISE [None]
